FAERS Safety Report 9434383 (Version 2)
Quarter: 2013Q3

REPORT INFORMATION
  Report Type: Report from Study
  Country: DE (occurrence: DE)
  Receive Date: 20130801
  Receipt Date: 20130827
  Transmission Date: 20140515
  Serious: Yes (Hospitalization)
  Sender: FDA-Public Use
  Company Number: DE-ABBOTT-13P-062-1124791-00

PATIENT
  Age: 30 Year
  Sex: Female
  Weight: 67 kg

DRUGS (2)
  1. HUMIRA [Suspect]
     Indication: CROHN^S DISEASE
     Route: 058
     Dates: start: 20120102, end: 20130121
  2. HUMIRA [Suspect]
     Route: 058
     Dates: start: 20130121, end: 201303

REACTIONS (5)
  - Ileal stenosis [Recovered/Resolved]
  - Impaired healing [Recovered/Resolved]
  - Impaired healing [Recovered/Resolved]
  - Impaired healing [Recovered/Resolved]
  - Wound infection staphylococcal [Recovered/Resolved]
